FAERS Safety Report 8001317-4 (Version None)
Quarter: 2011Q4

REPORT INFORMATION
  Report Type: 
  Country: None (occurrence: None)
  Receive Date: 20111222
  Receipt Date: 20111216
  Transmission Date: 20120403
  Serious: Yes (Hospitalization)
  Sender: FDA-Public Use
  Company Number: US-US-EMD SERONO, INC.-7102347

PATIENT
  Sex: Female

DRUGS (1)
  1. REBIF [Suspect]
     Indication: PRODUCT USED FOR UNKNOWN INDICATION
     Route: 058
     Dates: start: 20110413

REACTIONS (7)
  - PAIN IN EXTREMITY [None]
  - HYPERTENSION [None]
  - BALANCE DISORDER [None]
  - PARAESTHESIA [None]
  - MOBILITY DECREASED [None]
  - FATIGUE [None]
  - DYSPNOEA [None]
